FAERS Safety Report 15660581 (Version 1)
Quarter: 2018Q4

REPORT INFORMATION
  Report Type: Spontaneous
  Country: US (occurrence: US)
  Receive Date: 20181127
  Receipt Date: 20181127
  Transmission Date: 20190205
  Serious: Yes (Death)
  Sender: FDA-Public Use
  Company Number: US-ROCHE-2221199

PATIENT
  Age: 55 Year
  Sex: Female

DRUGS (1)
  1. ALECENSA [Suspect]
     Active Substance: ALECTINIB HYDROCHLORIDE
     Indication: LUNG NEOPLASM MALIGNANT
     Dosage: TAKE 4 CAPSULES (600 MG TOTAL) BY MOUTH TWICE DAILY WITH FOOD.
     Route: 048
     Dates: start: 20180703, end: 20181101

REACTIONS (1)
  - Death [Fatal]

NARRATIVE: CASE EVENT DATE: 20181101
